APPROVED DRUG PRODUCT: SALPIX
Active Ingredient: ACETRIZOATE SODIUM
Strength: 53%
Dosage Form/Route: SOLUTION;INTRAUTERINE
Application: N009008 | Product #001
Applicant: ORTHO MCNEIL PHARMACEUTICAL INC
Approved: Approved Prior to Jan 1, 1982 | RLD: No | RS: No | Type: DISCN